FAERS Safety Report 14218442 (Version 3)
Quarter: 2018Q1

REPORT INFORMATION
  Report Type: Spontaneous
  Country: JP (occurrence: JP)
  Receive Date: 20171123
  Receipt Date: 20180130
  Transmission Date: 20180508
  Serious: Yes (Other)
  Sender: FDA-Public Use
  Company Number: JP-PFM-2017-10635

PATIENT

DRUGS (1)
  1. NAVELBINE [Suspect]
     Active Substance: VINORELBINE TARTRATE
     Indication: BREAST CANCER
     Dosage: UNK
     Route: 042

REACTIONS (6)
  - Anaemia [Unknown]
  - Neutrophil count decreased [Unknown]
  - Tumour lysis syndrome [Unknown]
  - Cystitis haemorrhagic [Recovering/Resolving]
  - Multiple organ dysfunction syndrome [Unknown]
  - Rash [Recovering/Resolving]
